FAERS Safety Report 20713523 (Version 1)
Quarter: 2022Q2

REPORT INFORMATION
  Report Type: Spontaneous
  Country: US (occurrence: None)
  Receive Date: 20220414
  Receipt Date: 20220414
  Transmission Date: 20220721
  Serious: Yes (Other)
  Sender: FDA-Public Use
  Company Number: None

PATIENT
  Age: 20 Year
  Sex: Female
  Weight: 79.1 kg

DRUGS (1)
  1. LACOSAMIDE [Suspect]
     Active Substance: LACOSAMIDE
     Indication: Epilepsy
     Dosage: FREQUENCY : TWICE A DAY;?
     Route: 048
     Dates: start: 202203, end: 20220413

REACTIONS (3)
  - Vomiting [None]
  - Headache [None]
  - Product substitution issue [None]

NARRATIVE: CASE EVENT DATE: 20220413
